FAERS Safety Report 5525726-8 (Version None)
Quarter: 2007Q4

REPORT INFORMATION
  Report Type: 
  Country: None (occurrence: None)
  Receive Date: 20071126
  Receipt Date: 20071114
  Transmission Date: 20080405
  Serious: Yes (Other)
  Sender: FDA-Public Use
  Company Number: JP-ROCHE-521455

PATIENT
  Age: 13 Year
  Sex: Male
  Weight: 24 kg

DRUGS (3)
  1. ROCEPHIN [Suspect]
     Dosage: DOSE DECREASED.
     Route: 041
     Dates: start: 20070918, end: 20070919
  2. ROCEPHIN [Suspect]
     Route: 041
     Dates: start: 20070920, end: 20070920
  3. TEGRETOL [Concomitant]
     Dosage: FORM: ORAL FORMULATION.
     Route: 048
     Dates: start: 20070918, end: 20070920

REACTIONS (3)
  - HEPATIC FUNCTION ABNORMAL [None]
  - HYPOPROTHROMBINAEMIA [None]
  - LIVER DISORDER [None]
